FAERS Safety Report 8896312 (Version 7)
Quarter: 2013Q2

REPORT INFORMATION
  Report Type: Spontaneous
  Country: CA (occurrence: None)
  Receive Date: 20121031
  Receipt Date: 20130521
  Transmission Date: 20140414
  Serious: Yes (Other)
  Sender: FDA-Public Use
  Company Number: ADR-2012-01968

PATIENT
  Sex: 0

DRUGS (1)
  1. LIORESAL [Suspect]

REACTIONS (15)
  - Implant site erythema [None]
  - Implant site inflammation [None]
  - Device dislocation [None]
  - Drug withdrawal syndrome [None]
  - Unevaluable event [None]
  - Hyperaesthesia [None]
  - Muscle spasms [None]
  - Condition aggravated [None]
  - Device leakage [None]
  - Discomfort [None]
  - Implant site swelling [None]
  - Implant site irritation [None]
  - Rash [None]
  - Device issue [None]
  - Dermatitis allergic [None]
